FAERS Safety Report 14687351 (Version 1)
Quarter: 2018Q1

REPORT INFORMATION
  Report Type: Spontaneous
  Country: FR (occurrence: FR)
  Receive Date: 20180328
  Receipt Date: 20180328
  Transmission Date: 20180509
  Serious: Yes (Other)
  Sender: FDA-Public Use
  Company Number: FR-CIPLA LTD.-2018FR13539

PATIENT

DRUGS (6)
  1. BLEOMYCIN SULPHATE [Suspect]
     Active Substance: BLEOMYCIN SULFATE
     Dosage: UNK
     Route: 065
  2. CARBOPLATIN. [Suspect]
     Active Substance: CARBOPLATIN
     Indication: OVARIAN DYSGERMINOMA STAGE UNSPECIFIED
     Dosage: UNK
     Route: 065
  3. CISPLATIN. [Suspect]
     Active Substance: CISPLATIN
     Indication: OVARIAN DYSGERMINOMA STAGE UNSPECIFIED
     Dosage: UNK
     Route: 065
  4. BLEOMYCIN SULPHATE [Suspect]
     Active Substance: BLEOMYCIN SULFATE
     Indication: OVARIAN DYSGERMINOMA STAGE UNSPECIFIED
     Dosage: UNK
     Route: 065
  5. ETOPOSIDE. [Suspect]
     Active Substance: ETOPOSIDE
     Indication: OVARIAN DYSGERMINOMA STAGE UNSPECIFIED
     Dosage: UNK
     Route: 065
  6. VINBLASTINE [Suspect]
     Active Substance: VINBLASTINE
     Indication: OVARIAN DYSGERMINOMA STAGE UNSPECIFIED
     Dosage: UNK
     Route: 065

REACTIONS (1)
  - Ovarian dysgerminoma stage unspecified [Recovered/Resolved]
